FAERS Safety Report 9684251 (Version 1)
Quarter: 2013Q4

REPORT INFORMATION
  Report Type: Spontaneous
  Country: JP (occurrence: JP)
  Receive Date: 20131112
  Receipt Date: 20131112
  Transmission Date: 20140711
  Serious: Yes (Other)
  Sender: FDA-Public Use
  Company Number: JP-GLAXOSMITHKLINE-B0941417A

PATIENT
  Sex: Male

DRUGS (2)
  1. ZEFIX 100 [Suspect]
     Indication: HEPATITIS B
     Dosage: 100MG PER DAY
     Route: 048
  2. HEPSERA 10 [Suspect]
     Indication: HEPATITIS B
     Dosage: 10MG PER DAY
     Route: 048

REACTIONS (1)
  - Pneumonia [Unknown]
